FAERS Safety Report 5640021-4 (Version None)
Quarter: 2008Q1

REPORT INFORMATION
  Report Type: 
  Country: None (occurrence: None)
  Receive Date: 20080227
  Receipt Date: 20080202
  Transmission Date: 20080703
  Serious: No
  Sender: FDA-Public Use
  Company Number: US-BAYER-200813368NA

PATIENT
  Age: 27 Year
  Sex: Female
  Weight: 63 kg

DRUGS (2)
  1. YAZ [Suspect]
     Indication: CONTRACEPTION
     Route: 048
     Dates: start: 20080101
  2. MULTIVITAMIN (NOS) [Concomitant]
     Route: 048

REACTIONS (1)
  - WITHDRAWAL BLEEDING IRREGULAR [None]
